FAERS Safety Report 8992671 (Version 1)
Quarter: 2013Q1

REPORT INFORMATION
  Report Type: Spontaneous
  Country: US (occurrence: US)
  Receive Date: 20130101
  Receipt Date: 20130101
  Transmission Date: 20140127
  Serious: No
  Sender: FDA-Public Use
  Company Number: US-TEVA-377989USA

PATIENT
  Age: 64 Year
  Sex: Male
  Weight: 104.42 kg

DRUGS (5)
  1. NUVIGIL [Suspect]
     Indication: NARCOLEPSY
     Dosage: 150 MILLIGRAM DAILY;
     Route: 048
     Dates: start: 20121208
  2. MOBIC [Concomitant]
     Indication: ARTHRITIS
  3. METOPROLOL [Concomitant]
     Indication: HYPERTENSION
     Dosage: 100 MILLIGRAM DAILY;
     Route: 048
  4. PREVACID [Concomitant]
     Indication: DYSPEPSIA
     Dosage: 15 MILLIGRAM DAILY;
     Route: 048
  5. PRAVASTATIN [Concomitant]
     Indication: BLOOD CHOLESTEROL INCREASED
     Dosage: 80 MILLIGRAM DAILY;
     Route: 048

REACTIONS (5)
  - Chapped lips [Recovering/Resolving]
  - Lip dry [Recovering/Resolving]
  - Dry mouth [Recovering/Resolving]
  - Lip swelling [Recovering/Resolving]
  - Aphthous stomatitis [Recovering/Resolving]
